FAERS Safety Report 8273320-0 (Version None)
Quarter: 2012Q2

REPORT INFORMATION
  Report Type: 
  Country: None (occurrence: None)
  Receive Date: 20120411
  Receipt Date: 20120403
  Transmission Date: 20120825
  Serious: Yes (Other)
  Sender: FDA-Public Use
  Company Number: PHHY2012BR029792

PATIENT
  Age: 47 Year
  Sex: Female

DRUGS (1)
  1. DIOVAN HCT [Suspect]
     Indication: HYPERTENSION
     Dosage: 1 DF X (160/12.5 MG), DAILY

REACTIONS (6)
  - PAIN [None]
  - HEADACHE [None]
  - BLOOD PRESSURE INCREASED [None]
  - EYE PAIN [None]
  - PYREXIA [None]
  - DENGUE FEVER [None]
